FAERS Safety Report 6681109-9 (Version None)
Quarter: 2010Q2

REPORT INFORMATION
  Report Type: 
  Country: None (occurrence: None)
  Receive Date: 20100413
  Receipt Date: 20100413
  Transmission Date: 20101027
  Serious: Yes (Other)
  Sender: FDA-Public Use
  Company Number: None

PATIENT
  Sex: Male
  Weight: 104.5 kg

DRUGS (1)
  1. LAMOTRIGINE [Suspect]
     Dosage: 100MG 1 QD PO
     Route: 048
     Dates: start: 20100209

REACTIONS (2)
  - GENERAL PHYSICAL HEALTH DETERIORATION [None]
  - PRODUCT SUBSTITUTION ISSUE [None]
